FAERS Safety Report 4935002-X (Version None)
Quarter: 2006Q1

REPORT INFORMATION
  Report Type: 
  Country: None (occurrence: None)
  Receive Date: 20060127
  Receipt Date: 20051018
  Transmission Date: 20060701
  Serious: Yes (Other)
  Sender: FDA-Public Use
  Company Number: 2005144879

PATIENT
  Age: 91 Year
  Sex: Female

DRUGS (10)
  1. LYRICA [Suspect]
     Indication: POST HERPETIC NEURALGIA
     Dosage: 150 MG (75 MG, 2 IN 1 D)
     Dates: start: 20050901, end: 20050901
  2. IBANDRONIC ACID (IBANDRONIC ACID) [Concomitant]
  3. LACTULOSE [Concomitant]
  4. LAXATIVES (LAXATIVES) [Concomitant]
  5. ASPIRIN [Concomitant]
  6. CALCIUM (CALCIUM) [Concomitant]
  7. SYNTHROID [Concomitant]
  8. ASTELIN [Concomitant]
  9. FOSMAX (ALENDRONATE SODIUM) [Concomitant]
  10. PLAVIX [Concomitant]

REACTIONS (2)
  - DIZZINESS [None]
  - SYNCOPE [None]
